FAERS Safety Report 7555995-4 (Version None)
Quarter: 2011Q2

REPORT INFORMATION
  Report Type: 
  Country: None (occurrence: None)
  Receive Date: 20110620
  Receipt Date: 20110611
  Transmission Date: 20111010
  Serious: Yes (Hospitalization, Other)
  Sender: FDA-Public Use
  Company Number: TW-PAR PHARMACEUTICAL, INC-2011SCPR003060

PATIENT
  Age: 42 Year
  Sex: Male

DRUGS (10)
  1. ARIPIPRAZOLE [Suspect]
     Indication: PSYCHOTIC DISORDER
     Dosage: 10 MG/D
     Route: 065
  2. ARIPIPRAZOLE [Suspect]
     Dosage: UNK
  3. FLUOXETINE HCL [Suspect]
     Dosage: 80 MG/DAY FOR 28 DAYS
     Route: 065
  4. QUETIAPINE [Concomitant]
     Indication: OBSESSIVE-COMPULSIVE DISORDER
  5. FLUOXETINE HCL [Suspect]
     Indication: OBSESSIVE-COMPULSIVE DISORDER
     Dosage: 60-80 MG/D
     Route: 065
  6. FLUOXETINE HCL [Suspect]
     Dosage: 80 MG/DAY FOR 1 MONTH
     Route: 065
  7. ARIPIPRAZOLE [Suspect]
     Indication: OBSESSIVE-COMPULSIVE DISORDER
     Dosage: 15 MG/D
  8. ARIPIPRAZOLE [Suspect]
     Dosage: TAPERED TO 10 MG/D
  9. ARIPIPRAZOLE [Suspect]
     Dosage: 20 MG/D
  10. QUETIAPINE [Concomitant]
     Indication: PSYCHOTIC DISORDER
     Dosage: 600 TO 800 MG/D
     Route: 065

REACTIONS (3)
  - LEUKOPENIA [None]
  - NEUTROPENIA [None]
  - DRUG INTERACTION [None]
